FAERS Safety Report 9084172 (Version 1)
Quarter: 2013Q1

REPORT INFORMATION
  Report Type: Spontaneous
  Country: US (occurrence: US)
  Receive Date: 20130130
  Receipt Date: 20130130
  Transmission Date: 20140127
  Serious: No
  Sender: FDA-Public Use
  Company Number: US-ASTRAZENECA-2013SE02429

PATIENT
  Age: 68 Year
  Sex: Female
  Weight: 53.5 kg

DRUGS (9)
  1. SEROQUEL XR [Suspect]
     Indication: BIPOLAR DISORDER
     Route: 048
     Dates: start: 201206
  2. SEROQUEL XR [Suspect]
     Indication: BIPOLAR DISORDER
     Dosage: CUTTING THE TABLET IN HALF TO GET 25 MG
     Route: 048
  3. SEROQUEL XR [Suspect]
     Indication: BIPOLAR DISORDER
     Route: 048
     Dates: end: 20121205
  4. SEROQUEL XR [Suspect]
     Indication: BIPOLAR DISORDER
     Route: 048
     Dates: start: 20130108
  5. SEROQUEL XR [Suspect]
     Indication: BIPOLAR DISORDER
     Route: 048
     Dates: start: 20130109
  6. DEPAKOTE [Concomitant]
     Indication: BIPOLAR DISORDER
     Dates: start: 2003
  7. LAMICTAL [Concomitant]
     Indication: BIPOLAR DISORDER
     Dates: start: 2009
  8. WELLBUTRIN [Concomitant]
     Indication: BIPOLAR DISORDER
     Dates: start: 2009
  9. PRAVISTATIN [Concomitant]
     Indication: BLOOD CHOLESTEROL INCREASED
     Dates: start: 2010

REACTIONS (7)
  - Feeling abnormal [Unknown]
  - Fear of eating [Unknown]
  - Insomnia [Unknown]
  - Dyskinesia [Unknown]
  - Tremor [Unknown]
  - Intentional drug misuse [Unknown]
  - Off label use [Unknown]
